FAERS Safety Report 17537350 (Version 2)
Quarter: 2020Q2

REPORT INFORMATION
  Report Type: Report from Study
  Country: JP (occurrence: JP)
  Receive Date: 20200313
  Receipt Date: 20200407
  Transmission Date: 20200713
  Serious: Yes (Hospitalization, Disabling, Other)
  Sender: FDA-Public Use
  Company Number: NVSJ2020JP003053

PATIENT
  Age: 36 Year
  Sex: Female
  Weight: 23.8 kg

DRUGS (36)
  1. ILARIS [Suspect]
     Active Substance: CANAKINUMAB
     Dosage: 105 MG
     Route: 058
     Dates: start: 20190326
  2. ILARIS [Suspect]
     Active Substance: CANAKINUMAB
     Dosage: 120 MG
     Route: 058
     Dates: start: 20190723
  3. METHOTREXATE. [Concomitant]
     Active Substance: METHOTREXATE
     Indication: STILL^S DISEASE
     Dosage: 10 MG/KG
     Route: 048
  4. CEFAZOLIN SODIUM. [Concomitant]
     Active Substance: CEFAZOLIN SODIUM
     Indication: PRODUCT USED FOR UNKNOWN INDICATION
     Dosage: 2 G
     Route: 065
     Dates: start: 20181219, end: 20181219
  5. ILARIS [Suspect]
     Active Substance: CANAKINUMAB
     Dosage: 135 MG
     Route: 058
     Dates: start: 20190423
  6. FOLIAMIN [Concomitant]
     Active Substance: FOLIC ACID
     Indication: PRODUCT USED FOR UNKNOWN INDICATION
     Dosage: 10 MG/KG
     Route: 048
     Dates: start: 20111102
  7. DAIBOFUTO [Concomitant]
     Indication: STILL^S DISEASE
     Dosage: 7 G
     Route: 048
     Dates: start: 20170822
  8. PRALIA [Concomitant]
     Active Substance: DENOSUMAB
     Indication: PRODUCT USED FOR UNKNOWN INDICATION
     Dosage: 60 MG/6MONTH
     Route: 065
     Dates: start: 20140109
  9. CARBAZOCHROME SODIUM SULFONATE [Concomitant]
     Active Substance: CARBAZOCHROME SODIUM SULFONATE
     Indication: PRODUCT USED FOR UNKNOWN INDICATION
     Dosage: 1000 MG
     Route: 065
     Dates: start: 20190605, end: 20190605
  10. HYDROCORTONE [Concomitant]
     Active Substance: HYDROCORTISONE
     Indication: PRODUCT USED FOR UNKNOWN INDICATION
     Dosage: 50 MG
     Route: 065
     Dates: start: 20190605, end: 20190605
  11. OMEPRAZOLE. [Concomitant]
     Active Substance: OMEPRAZOLE
     Indication: PRODUCT USED FOR UNKNOWN INDICATION
     Dosage: 15 MG
     Route: 065
     Dates: start: 20190605, end: 20190607
  12. ILARIS [Suspect]
     Active Substance: CANAKINUMAB
     Dosage: 97.5 MG
     Route: 058
     Dates: start: 20180830
  13. ILARIS [Suspect]
     Active Substance: CANAKINUMAB
     Dosage: 105 MG
     Route: 058
     Dates: start: 20190131
  14. MOHRUS [Concomitant]
     Active Substance: KETOPROFEN
     Indication: STILL^S DISEASE
     Dosage: 1 SHEET
     Route: 050
     Dates: start: 20150212
  15. INFLUENZA VIRUS VACCINE [Concomitant]
     Active Substance: INFLUENZA VIRUS VACCINE
     Indication: PRODUCT USED FOR UNKNOWN INDICATION
     Dosage: 0.5 ML
     Route: 065
     Dates: start: 20181120, end: 20181120
  16. GLYCEREB [Concomitant]
     Active Substance: FRUCTOSE\GLYCERIN
     Indication: PRODUCT USED FOR UNKNOWN INDICATION
     Dosage: 100 ML
     Route: 065
     Dates: start: 20190605, end: 20190605
  17. ILARIS [Suspect]
     Active Substance: CANAKINUMAB
     Dosage: 150 MG
     Route: 058
     Dates: start: 20190528
  18. EDIROL [Concomitant]
     Active Substance: ELDECALCITOL
     Indication: PRODUCT USED FOR UNKNOWN INDICATION
     Dosage: 0.75 UG
     Route: 048
     Dates: start: 20180502
  19. SHAKUYAKUKANZOTO [Concomitant]
     Active Substance: HERBALS
     Indication: STILL^S DISEASE
     Dosage: 2.5 G
     Route: 048
     Dates: start: 20190115
  20. NICARDIPINE HYDROCHLORIDE. [Concomitant]
     Active Substance: NICARDIPINE HYDROCHLORIDE
     Indication: PRODUCT USED FOR UNKNOWN INDICATION
     Dosage: 96 MG
     Route: 065
     Dates: start: 20190605, end: 20190606
  21. ILARIS [Suspect]
     Active Substance: CANAKINUMAB
     Indication: STILL^S DISEASE
     Dosage: 97.5 MG
     Route: 058
     Dates: start: 20180807
  22. ILARIS [Suspect]
     Active Substance: CANAKINUMAB
     Dosage: 105 MG
     Route: 058
     Dates: start: 20181120
  23. TANATRIL [Concomitant]
     Active Substance: IMIDAPRIL
     Indication: PRODUCT USED FOR UNKNOWN INDICATION
     Dosage: 5 MG
     Route: 048
     Dates: start: 202002
  24. TAKECAB [Concomitant]
     Active Substance: VONOPRAZAN FUMARATE
     Indication: PRODUCT USED FOR UNKNOWN INDICATION
     Dosage: 10 MG
     Route: 048
     Dates: start: 20170912
  25. PREDNISOLONE. [Concomitant]
     Active Substance: PREDNISOLONE
     Indication: STILL^S DISEASE
     Dosage: 4.5 MG
     Route: 048
     Dates: start: 202002
  26. DIPRIVAN [Concomitant]
     Active Substance: PROPOFOL
     Indication: PRODUCT USED FOR UNKNOWN INDICATION
     Dosage: 1000 MG
     Route: 065
     Dates: start: 20190605, end: 20190605
  27. ILARIS [Suspect]
     Active Substance: CANAKINUMAB
     Dosage: 105 MG
     Route: 058
     Dates: start: 20181227
  28. ILARIS [Suspect]
     Active Substance: CANAKINUMAB
     Dosage: 105 MG
     Route: 058
     Dates: start: 20190226
  29. SULBACILLIN [Concomitant]
     Active Substance: AMPICILLIN SODIUM\SULBACTAM SODIUM
     Indication: PRODUCT USED FOR UNKNOWN INDICATION
     Dosage: 3 G
     Route: 065
     Dates: start: 20190123, end: 20190124
  30. TRANEXAMIC ACID. [Concomitant]
     Active Substance: TRANEXAMIC ACID
     Indication: PRODUCT USED FOR UNKNOWN INDICATION
     Dosage: 1000 MG
     Route: 065
     Dates: start: 20190605, end: 20190605
  31. ILARIS [Suspect]
     Active Substance: CANAKINUMAB
     Dosage: 97.5 MG
     Route: 058
     Dates: start: 20180927
  32. ILARIS [Suspect]
     Active Substance: CANAKINUMAB
     Dosage: 97.5 MG
     Route: 058
     Dates: start: 20181025
  33. ILARIS [Suspect]
     Active Substance: CANAKINUMAB
     Dosage: 105 MG
     Route: 058
     Dates: start: 20190625
  34. FERROUS CITRATE NA [Concomitant]
     Active Substance: SODIUM FERROUS CITRATE
     Indication: PRODUCT USED FOR UNKNOWN INDICATION
     Dosage: 50 MG
     Route: 048
     Dates: start: 20180822, end: 20190701
  35. SUMILU [Concomitant]
     Active Substance: FELBINAC
     Indication: STILL^S DISEASE
     Dosage: 1 G
     Route: 050
     Dates: start: 20180627
  36. CEFAZOLIN SODIUM. [Concomitant]
     Active Substance: CEFAZOLIN SODIUM
     Dosage: 3 G
     Route: 065
     Dates: start: 20190605, end: 20190607

REACTIONS (11)
  - Cardiac failure congestive [Recovering/Resolving]
  - Hyperglycaemia [Recovered/Resolved]
  - Pain [Recovering/Resolving]
  - Lymphocyte count decreased [Unknown]
  - Odontogenic cyst [Recovering/Resolving]
  - Aortic valve incompetence [Not Recovered/Not Resolved]
  - Decreased activity [Unknown]
  - Periodontitis [Recovering/Resolving]
  - Cardiogenic shock [Recovered/Resolved]
  - Hypercholesterolaemia [Not Recovered/Not Resolved]
  - Constipation [Recovering/Resolving]

NARRATIVE: CASE EVENT DATE: 20181211
